FAERS Safety Report 9820861 (Version 1)
Quarter: 2013Q4

REPORT INFORMATION
  Report Type: Spontaneous
  Country: US (occurrence: None)
  Receive Date: 20131028
  Receipt Date: 20131028
  Transmission Date: 20140711
  Serious: Yes (Other)
  Sender: FDA-Public Use
  Company Number: 2013US001490

PATIENT
  Age: 50 Year
  Sex: Male
  Weight: 93 kg

DRUGS (3)
  1. ICLUSIG [Suspect]
     Indication: CHRONIC MYELOID LEUKAEMIA
     Dosage: 45 MG, QD, ORAL
     Route: 048
     Dates: start: 20130411, end: 201304
  2. MULTIVITAMIN (VITAMIN NOS) [Concomitant]
  3. VITAMIN D3 (VITAMIN D3) [Concomitant]

REACTIONS (17)
  - Abnormal faeces [None]
  - Pancreatic disorder [None]
  - Liver disorder [None]
  - Vertigo [None]
  - Urinary hesitation [None]
  - Pollakiuria [None]
  - Nocturia [None]
  - Sleep disorder [None]
  - Intervertebral disc degeneration [None]
  - Pain in extremity [None]
  - Abdominal pain upper [None]
  - Headache [None]
  - Arthralgia [None]
  - Myalgia [None]
  - Constipation [None]
  - Lipase increased [None]
  - Weight decreased [None]
